FAERS Safety Report 7755368-5 (Version None)
Quarter: 2011Q3

REPORT INFORMATION
  Report Type: 
  Country: None (occurrence: None)
  Receive Date: 20110914
  Receipt Date: 20110908
  Transmission Date: 20111222
  Serious: Yes (Life-Threatening, Hospitalization)
  Sender: FDA-Public Use
  Company Number: ABR_00234_2011

PATIENT
  Age: 67 Year
  Sex: Male

DRUGS (15)
  1. PREDNISOLONE [Concomitant]
  2. MESTINON [Concomitant]
  3. PROPANTHELINE BROMIDE [Concomitant]
  4. BENDROFLUMETHIAZIDE [Concomitant]
  5. ISTIN [Concomitant]
  6. LANSOPRAZOLE [Concomitant]
  7. RAMIPRIL [Concomitant]
  8. CO-DYDRAMOL [Concomitant]
  9. ACIDEX /01521901/ [Concomitant]
  10. ERYTHROMYCIN [Suspect]
     Indication: PRODUCT USED FOR UNKNOWN INDICATION
     Dosage: 1000 MG (250 MG, 4 IN 1 D) ORAL
     Route: 048
     Dates: start: 20110601
  11. AMOXICILLIN [Concomitant]
  12. ALENDRONIC ACID [Concomitant]
  13. QVAR 40 [Concomitant]
  14. VENTOLIN [Concomitant]
  15. IBUPROFEN [Concomitant]

REACTIONS (2)
  - CONDITION AGGRAVATED [None]
  - MYASTHENIA GRAVIS [None]
